FAERS Safety Report 14545024 (Version 1)
Quarter: 2018Q1

REPORT INFORMATION
  Report Type: Spontaneous
  Country: US (occurrence: US)
  Receive Date: 20180216
  Receipt Date: 20180216
  Transmission Date: 20180509
  Serious: No
  Sender: FDA-Public Use
  Company Number: None

PATIENT
  Age: 45 Year

DRUGS (13)
  1. BENADRYL [Concomitant]
     Active Substance: DIPHENHYDRAMINE HYDROCHLORIDE
  2. NAPROXEN. [Concomitant]
     Active Substance: NAPROXEN
  3. RISPERIDONE. [Concomitant]
     Active Substance: RISPERIDONE
  4. MECLAZINE 25 MG, 25 MG [Concomitant]
     Active Substance: MECLIZINE HYDROCHLORIDE
  5. PROPRANOLOL [Suspect]
     Active Substance: PROPRANOLOL HYDROCHLORIDE
     Indication: MIGRAINE
     Dosage: ?          QUANTITY:1 TABLET(S);?
     Route: 048
  6. BUPROPION. [Concomitant]
     Active Substance: BUPROPION
  7. VYVANSE [Concomitant]
     Active Substance: LISDEXAMFETAMINE DIMESYLATE
  8. MVI [Concomitant]
     Active Substance: VITAMINS
  9. PROPANOLOL [Concomitant]
     Active Substance: PROPRANOLOL HYDROCHLORIDE
  10. SUMATRIPTAN. [Concomitant]
     Active Substance: SUMATRIPTAN
  11. LORAZEPAM. [Concomitant]
     Active Substance: LORAZEPAM
  12. TRAMADOL. [Concomitant]
     Active Substance: TRAMADOL
  13. TOPIRAMATE. [Concomitant]
     Active Substance: TOPIRAMATE

REACTIONS (2)
  - Pruritus [None]
  - Weight increased [None]

NARRATIVE: CASE EVENT DATE: 20180215
